FAERS Safety Report 4789430-6 (Version None)
Quarter: 2005Q4

REPORT INFORMATION
  Report Type: 
  Country: None (occurrence: None)
  Receive Date: 20051004
  Receipt Date: 20050920
  Transmission Date: 20060501
  Serious: Yes (Disabling)
  Sender: FDA-Public Use
  Company Number: 212954

PATIENT
  Age: 65 Year
  Sex: Female

DRUGS (9)
  1. RITUXAN [Suspect]
     Indication: WALDENSTROM'S MACROGLOBULINAEMIA
     Dates: start: 20010901
  2. LOTREL (BENAZEPRIL HYDROCHLORIDE, AMLODIPINE BESYLATE) [Concomitant]
  3. TRENTAL [Concomitant]
  4. ASPIRIN [Concomitant]
  5. BROMFED (BROMPHENIRAMINE MALEATE, PSEUDOEPHEDRINE HYDROCHLORIDE) [Concomitant]
  6. BEXTRA [Concomitant]
  7. PRILOSEC [Concomitant]
  8. SYNTHROID [Concomitant]
  9. COUMADIN [Concomitant]

REACTIONS (2)
  - AMNESIA [None]
  - CEREBRAL DISORDER [None]
